FAERS Safety Report 8976217 (Version 1)
Quarter: 2012Q4

REPORT INFORMATION
  Report Type: Report from Study
  Country: CA (occurrence: CA)
  Receive Date: 20121220
  Receipt Date: 20121220
  Transmission Date: 20130627
  Serious: Yes (Other)
  Sender: FDA-Public Use
  Company Number: CA-ROCHE-1167272

PATIENT
  Age: 41 Year
  Sex: Male
  Weight: 80.19 kg

DRUGS (10)
  1. OMALIZUMAB [Suspect]
     Indication: ASTHMA
     Dosage: 150 mg, 1/Month
     Route: 058
     Dates: start: 20060323
  2. OMALIZUMAB [Suspect]
     Dosage: 150 mg, 1/Month
     Route: 058
     Dates: start: 20090714
  3. UNIPHYL [Concomitant]
     Indication: PRODUCT USED FOR UNKNOWN INDICATION
  4. ATROVENT INHALER [Concomitant]
     Indication: PRODUCT USED FOR UNKNOWN INDICATION
  5. SYMBICORT [Concomitant]
     Indication: PRODUCT USED FOR UNKNOWN INDICATION
  6. QVAR [Concomitant]
     Indication: PRODUCT USED FOR UNKNOWN INDICATION
  7. NEXIUM [Concomitant]
     Indication: PRODUCT USED FOR UNKNOWN INDICATION
  8. SINGULAIR [Concomitant]
  9. SULCRATE [Concomitant]
     Indication: PRODUCT USED FOR UNKNOWN INDICATION
  10. CLARITIN [Concomitant]
     Indication: PRODUCT USED FOR UNKNOWN INDICATION

REACTIONS (8)
  - Asthma [Recovering/Resolving]
  - Heart rate increased [Unknown]
  - Nasopharyngitis [Unknown]
  - Sinusitis [Unknown]
  - Back pain [Unknown]
  - Influenza [Unknown]
  - Somnolence [Unknown]
  - Fatigue [Unknown]
